FAERS Safety Report 6585450-X (Version None)
Quarter: 2010Q1

REPORT INFORMATION
  Report Type: 
  Country: None (occurrence: None)
  Receive Date: 20100217
  Receipt Date: 20100211
  Transmission Date: 20100710
  Serious: Yes (Hospitalization)
  Sender: FDA-Public Use
  Company Number: B0634071A

PATIENT
  Sex: Female

DRUGS (2)
  1. AUGMENTIN [Suspect]
     Route: 065
     Dates: start: 20100202, end: 20100203
  2. INTRON A [Concomitant]
     Dosage: 1IU PER DAY

REACTIONS (2)
  - DYSPNOEA [None]
  - RASH [None]
